FAERS Safety Report 8918069 (Version 1)
Quarter: 2012Q4

REPORT INFORMATION
  Report Type: 
  Country: US (occurrence: US)
  Receive Date: 20121120
  Receipt Date: 20121120
  Transmission Date: 20130627
  Serious: No
  Sender: FDA-Public Use
  Company Number: US-ASTRAZENECA-2012SE14487

PATIENT
  Age: 53 Year
  Sex: Female

DRUGS (3)
  1. NEXIUM [Suspect]
     Route: 048
  2. ALBUTEROL [Concomitant]
  3. SPRIVA [Concomitant]

REACTIONS (6)
  - Dyspepsia [Unknown]
  - Oropharyngeal plaque [Unknown]
  - Gastrooesophageal reflux disease [Unknown]
  - Chest discomfort [Unknown]
  - Dysphagia [Unknown]
  - Drug dose omission [Unknown]
